FAERS Safety Report 17240641 (Version 1)
Quarter: 2019Q4

REPORT INFORMATION
  Report Type: Spontaneous
  Country: US (occurrence: US)
  Receive Date: 20191212
  Receipt Date: 20191212
  Transmission Date: 20200122
  Serious: No
  Sender: FDA-Public Use
  Company Number: None

PATIENT
  Age: 63 Year
  Sex: Male

DRUGS (2)
  1. ABACAVIR/LAMIVUDINE++ 600/300MG LUPIN PHARMACEUTICALS [Suspect]
     Active Substance: ABACAVIR\LAMIVUDINE
     Indication: HIV INFECTION
     Dosage: ?          OTHER DOSE:600/300MG;?
     Route: 048
     Dates: start: 20191003
  2. EFAVIRENZ 600MG MYLAN [Suspect]
     Active Substance: EFAVIRENZ
     Indication: HIV INFECTION
     Route: 048
     Dates: start: 20191003

REACTIONS (2)
  - Manufacturing issue [None]
  - Diarrhoea [None]

NARRATIVE: CASE EVENT DATE: 20191007
